FAERS Safety Report 23877801 (Version 1)
Quarter: 2024Q2

REPORT INFORMATION
  Report Type: Spontaneous
  Country: US (occurrence: US)
  Receive Date: 20240521
  Receipt Date: 20240521
  Transmission Date: 20240716
  Serious: No
  Sender: FDA-Public Use
  Company Number: US-CIPLA LTD.-2024US02941

PATIENT

DRUGS (2)
  1. ALBUTEROL [Suspect]
     Active Substance: ALBUTEROL
     Indication: Cough
     Dosage: 180 MICROGRAM, PRN (2 PUFFS AS NEEDED)
     Dates: start: 202402
  2. ALBUTEROL [Suspect]
     Active Substance: ALBUTEROL
     Indication: Bronchitis

REACTIONS (2)
  - Upper-airway cough syndrome [Not Recovered/Not Resolved]
  - Incorrect dose administered by device [Unknown]

NARRATIVE: CASE EVENT DATE: 20240101
